FAERS Safety Report 6555934-9 (Version None)
Quarter: 2010Q1

REPORT INFORMATION
  Report Type: 
  Country: None (occurrence: None)
  Receive Date: 20100125
  Receipt Date: 20100115
  Transmission Date: 20100710
  Serious: Yes (Other)
  Sender: FDA-Public Use
  Company Number: 2009SP042361

PATIENT
  Age: 53 Year
  Sex: Female

DRUGS (18)
  1. REMERON [Suspect]
     Indication: DEPRESSION
     Dosage: 15 MG; QD; PO
     Route: 048
     Dates: start: 20091127, end: 20091127
  2. DEPROMEL [Concomitant]
  3. DOGMATYL [Concomitant]
  4. LIPITOR [Concomitant]
  5. SOLANAX [Concomitant]
  6. PADOPARINE [Concomitant]
  7. PROMAC [Concomitant]
  8. MAGLAX [Concomitant]
  9. LENDORMIN [Concomitant]
  10. PANTOSIN [Concomitant]
  11. HORIZON [Concomitant]
  12. KOUJIN [Concomitant]
  13. HERBAL [Concomitant]
  14. DAIO-KANZO-TO [Concomitant]
  15. CERCINE [Concomitant]
  16. DRIED YEAST [Concomitant]
  17. PURSENNID [Concomitant]
  18. LEXOTAN [Concomitant]

REACTIONS (9)
  - ALTERED STATE OF CONSCIOUSNESS [None]
  - AMNESIA [None]
  - DIARRHOEA [None]
  - FALL [None]
  - HEADACHE [None]
  - LOSS OF CONSCIOUSNESS [None]
  - MOVEMENT DISORDER [None]
  - MUSCULOSKELETAL PAIN [None]
  - NAUSEA [None]
